FAERS Safety Report 13540411 (Version 4)
Quarter: 2017Q4

REPORT INFORMATION
  Report Type: Spontaneous
  Country: US (occurrence: US)
  Receive Date: 20170512
  Receipt Date: 20171025
  Transmission Date: 20180320
  Serious: Yes (Hospitalization)
  Sender: FDA-Public Use
  Company Number: US-DSJP-DSU-2017-114498

PATIENT

DRUGS (6)
  1. UNKNOWN STOOL SOFTNER [Interacting]
     Active Substance: UNSPECIFIED INGREDIENT
     Indication: CONSTIPATION
     Dosage: UNK
     Route: 065
  2. AZOR [Suspect]
     Active Substance: AMLODIPINE BESYLATE\OLMESARTAN MEDOXOMIL
     Indication: HYPERTENSION
     Dosage: 40/5 MG, QD
     Route: 048
     Dates: start: 201703, end: 2017
  3. UNKNOWN GENERICS [INGREDIENTS UNKNOWN] [Suspect]
     Active Substance: UNSPECIFIED INGREDIENT
     Indication: HYPERTENSION
     Dosage: UNK
     Route: 065
  4. LOSARTAN. [Suspect]
     Active Substance: LOSARTAN
     Indication: HYPERTENSION
     Dosage: UNK
     Route: 065
  5. BENICAR [Suspect]
     Active Substance: OLMESARTAN MEDOXOMIL
     Indication: HYPERTENSION
     Dosage: 40 MG, QD
     Route: 048
     Dates: start: 2012
  6. BENICAR [Interacting]
     Active Substance: OLMESARTAN MEDOXOMIL
     Dosage: 40 MG, QD
     Route: 048
     Dates: start: 20170508, end: 20170812

REACTIONS (16)
  - Muscle spasms [Recovering/Resolving]
  - Drug ineffective [None]
  - Pain [Recovering/Resolving]
  - Gait disturbance [Not Recovered/Not Resolved]
  - Constipation [Not Recovered/Not Resolved]
  - Influenza like illness [Unknown]
  - Palpitations [Unknown]
  - Dizziness [Unknown]
  - Vascular graft [Recovered/Resolved]
  - Burning sensation [Recovered/Resolved]
  - Arthralgia [Not Recovered/Not Resolved]
  - Therapeutic response decreased [Recovered/Resolved]
  - Dysstasia [Not Recovered/Not Resolved]
  - Drug interaction [Unknown]
  - Headache [Unknown]
  - Malabsorption [Unknown]

NARRATIVE: CASE EVENT DATE: 2013
